FAERS Safety Report 16218854 (Version 8)
Quarter: 2019Q3

REPORT INFORMATION
  Report Type: Spontaneous
  Country: JP (occurrence: JP)
  Receive Date: 20190419
  Receipt Date: 20190702
  Transmission Date: 20191004
  Serious: Yes (Death, Hospitalization, Other)
  Sender: FDA-Public Use
  Company Number: JP-PFIZER INC-2019171498

PATIENT
  Age: 85 Year
  Sex: Male

DRUGS (8)
  1. EVENITY [Suspect]
     Active Substance: ROMOSOZUMAB-AQQG
     Dosage: UNK
     Route: 058
     Dates: start: 20190416
  2. AMLODIPINE [Concomitant]
     Active Substance: AMLODIPINE BESYLATE
     Dosage: 2.5 MG, 1X/DAY
     Route: 048
  3. REBAMIPIDE [Concomitant]
     Active Substance: REBAMIPIDE
     Dosage: UNK
     Route: 048
  4. ONEALFA [Concomitant]
     Active Substance: ALFACALCIDOL
     Dosage: 0.5 UG, 1X/DAY
     Route: 048
  5. FERROMIA [Concomitant]
     Active Substance: SODIUM FERROUS CITRATE
     Dosage: UNK
     Route: 048
  6. EVENITY [Suspect]
     Active Substance: ROMOSOZUMAB-AQQG
     Indication: FRACTURE
     Dosage: 210 MG, 1X/DAY
     Route: 058
     Dates: start: 20190311
  7. CALONAL [Concomitant]
     Active Substance: ACETAMINOPHEN
     Dosage: UNK
     Route: 065
     Dates: start: 20190416
  8. CELECOX [Suspect]
     Active Substance: CELECOXIB
     Dosage: 200 MG, 1X/DAY
     Route: 048
     Dates: end: 2019

REACTIONS (6)
  - Pneumonia [Fatal]
  - Femoral neck fracture [Unknown]
  - Fall [Unknown]
  - Sepsis [Fatal]
  - Femoral neck fracture [Unknown]
  - Agitation [Unknown]

NARRATIVE: CASE EVENT DATE: 201903
